FAERS Safety Report 6140690-9 (Version None)
Quarter: 2009Q2

REPORT INFORMATION
  Report Type: 
  Country: None (occurrence: None)
  Receive Date: 20090402
  Receipt Date: 20090326
  Transmission Date: 20091009
  Serious: Yes (Hospitalization)
  Sender: FDA-Public Use
  Company Number: ZA-BIOGENIDEC-2009BI007620

PATIENT
  Age: 45 Year
  Sex: Female

DRUGS (3)
  1. TYSABRI [Suspect]
     Indication: MULTIPLE SCLEROSIS
     Route: 042
     Dates: start: 20081218, end: 20090211
  2. SUPRALEX [Concomitant]
     Indication: ANTIDEPRESSANT THERAPY
  3. LIORESAL [Concomitant]

REACTIONS (4)
  - POST LUMBAR PUNCTURE SYNDROME [None]
  - PROGRESSIVE MULTIFOCAL LEUKOENCEPHALOPATHY [None]
  - SINUSITIS [None]
  - URINARY TRACT INFECTION [None]
